FAERS Safety Report 15254099 (Version 2)
Quarter: 2018Q3

REPORT INFORMATION
  Report Type: Spontaneous
  Country: US (occurrence: US)
  Receive Date: 20180808
  Receipt Date: 20180820
  Transmission Date: 20181010
  Serious: Yes (Hospitalization)
  Sender: FDA-Public Use
  Company Number: US-TEVA-2018-US-937942

PATIENT
  Age: 33 Year
  Sex: Female

DRUGS (2)
  1. HYDROMORPHONE [Suspect]
     Active Substance: HYDROMORPHONE
     Indication: PAIN
     Route: 048
  2. HYDROMORPHONE [Suspect]
     Active Substance: HYDROMORPHONE
     Indication: PAIN
     Dosage: INJECTING CRUSHED HYDROMORPHONE TABLETS INTRAVENOUSLY
     Route: 042

REACTIONS (5)
  - Intentional product use issue [Unknown]
  - Pulmonary hypertension [Recovered/Resolved]
  - Foreign body reaction [Recovering/Resolving]
  - Arteritis [Recovering/Resolving]
  - Hypoxia [Recovering/Resolving]
